FAERS Safety Report 9407507 (Version 1)
Quarter: 2013Q3

REPORT INFORMATION
  Report Type: Spontaneous
  Country: US (occurrence: US)
  Receive Date: 20130718
  Receipt Date: 20130718
  Transmission Date: 20140515
  Serious: No
  Sender: FDA-Public Use
  Company Number: US-MYLANLABS-2013S1004516

PATIENT
  Sex: Female

DRUGS (3)
  1. METOPROLOL TARTRATE TABLETS, USP [Suspect]
     Indication: BLOOD PRESSURE INCREASED
     Route: 048
     Dates: start: 2009, end: 2011
  2. TIMOLOL MALEATE TABLETS, USP [Suspect]
     Indication: BLOOD PRESSURE INCREASED
     Route: 048
     Dates: start: 2011, end: 2012
  3. ATENOLOL TABLETS, USP [Suspect]
     Indication: BLOOD PRESSURE INCREASED
     Route: 048
     Dates: start: 2012, end: 2013

REACTIONS (2)
  - Urticaria [Recovered/Resolved]
  - Reaction to drug excipients [Recovered/Resolved]
